FAERS Safety Report 8823088 (Version 5)
Quarter: 2013Q1

REPORT INFORMATION
  Report Type: Report from Study
  Country: CA (occurrence: CA)
  Receive Date: 20121003
  Receipt Date: 20130306
  Transmission Date: 20140127
  Serious: Yes (Death, Other)
  Sender: FDA-Public Use
  Company Number: CA-ROCHE-1138667

PATIENT
  Age: 55 Year
  Sex: Female
  Weight: 74.46 kg

DRUGS (8)
  1. AVASTIN [Suspect]
     Indication: OVARIAN CANCER
     Route: 042
     Dates: start: 20120912, end: 20121010
  2. TAXOL [Concomitant]
  3. PAXIL [Concomitant]
  4. XANAX [Concomitant]
  5. LOVENOX [Concomitant]
  6. NEXIUM [Concomitant]
  7. DIPHENHYDRAMINE HCL [Concomitant]
     Indication: PREMEDICATION
     Route: 048
     Dates: start: 20120925, end: 20120925
  8. ACETAMINOPHEN [Concomitant]
     Indication: PREMEDICATION
     Route: 048
     Dates: start: 20120925, end: 20120925

REACTIONS (10)
  - Neoplasm malignant [Fatal]
  - Faeces pale [Recovered/Resolved]
  - Constipation [Recovered/Resolved]
  - Diarrhoea [Unknown]
  - Neutrophil count increased [Unknown]
  - Monocyte count increased [Unknown]
  - Haematocrit decreased [Unknown]
  - Red cell distribution width decreased [Unknown]
  - Reticulocyte count increased [Not Recovered/Not Resolved]
  - Blood magnesium decreased [Unknown]
